FAERS Safety Report 9357920 (Version 2)
Quarter: 2013Q3

REPORT INFORMATION
  Report Type: Spontaneous
  Country: DE (occurrence: DE)
  Receive Date: 20130620
  Receipt Date: 20130821
  Transmission Date: 20140515
  Serious: Yes (Death, Hospitalization, Other)
  Sender: FDA-Public Use
  Company Number: DE-EISAI INC-E7389-03920-SPO-DE

PATIENT
  Age: 75 Year
  Sex: Female

DRUGS (7)
  1. HALAVEN [Suspect]
     Indication: BREAST CANCER METASTATIC
     Route: 041
     Dates: start: 20120104, end: 20120404
  2. HALAVEN [Suspect]
     Route: 041
     Dates: start: 20111214, end: 20120104
  3. HALAVEN [Suspect]
     Route: 041
  4. STEROFUNDIN [Concomitant]
     Indication: PRODUCT USED FOR UNKNOWN INDICATION
     Route: 042
     Dates: start: 20111214, end: 20111214
  5. APREPITANT [Concomitant]
     Indication: PROPHYLAXIS OF NAUSEA AND VOMITING
     Dosage: UNKNOWN
     Route: 048
     Dates: start: 20111214, end: 20111214
  6. PALONOSETRON [Concomitant]
     Indication: PROPHYLAXIS OF NAUSEA AND VOMITING
     Dosage: UNKNOWN
     Route: 065
     Dates: start: 20111214, end: 20111214
  7. DEXAMETHASONE [Concomitant]
     Indication: PROPHYLAXIS OF NAUSEA AND VOMITING
     Dosage: UNKNOWN
     Route: 065
     Dates: start: 20111214, end: 20111214

REACTIONS (3)
  - Pneumonia [Fatal]
  - Diplegia [Unknown]
  - Headache [Recovered/Resolved]
